FAERS Safety Report 5078485-X (Version None)
Quarter: 2006Q3

REPORT INFORMATION
  Report Type: 
  Country: None (occurrence: None)
  Receive Date: 20060811
  Receipt Date: 20060801
  Transmission Date: 20061208
  Serious: Yes (Death)
  Sender: FDA-Public Use
  Company Number: IT-SANOFI-SYNTHELABO-A06200600259

PATIENT
  Sex: Male

DRUGS (8)
  1. FLUOROURACIL [Suspect]
     Indication: COLON CANCER STAGE II
     Route: 040
     Dates: start: 20060613, end: 20060614
  2. FLUOROURACIL [Suspect]
     Indication: METASTASES TO LYMPH NODES
     Route: 040
     Dates: start: 20060613, end: 20060614
  3. FLUOROURACIL [Suspect]
     Route: 041
     Dates: start: 20060613, end: 20060615
  4. FLUOROURACIL [Suspect]
     Route: 041
     Dates: start: 20060613, end: 20060615
  5. ELOXATIN [Suspect]
     Indication: COLON CANCER STAGE II
     Route: 041
     Dates: start: 20060613, end: 20060613
  6. ELOXATIN [Suspect]
     Indication: METASTASES TO LYMPH NODES
     Route: 041
     Dates: start: 20060613, end: 20060613
  7. FOLINIC ACID [Concomitant]
     Indication: COLON CANCER STAGE II
     Route: 041
     Dates: start: 20060613, end: 20060614
  8. FOLINIC ACID [Concomitant]
     Indication: METASTASES TO LYMPH NODES
     Route: 041
     Dates: start: 20060613, end: 20060614

REACTIONS (10)
  - DEHYDRATION [None]
  - DIARRHOEA [None]
  - LEUKOPENIA [None]
  - MUCOSAL INFLAMMATION [None]
  - OESOPHAGITIS [None]
  - PALMAR-PLANTAR ERYTHRODYSAESTHESIA SYNDROME [None]
  - PYREXIA [None]
  - SHOCK [None]
  - STOMATITIS [None]
  - THROMBOCYTOPENIA [None]
